FAERS Safety Report 5287557-6 (Version None)
Quarter: 2007Q1

REPORT INFORMATION
  Report Type: 
  Country: None (occurrence: None)
  Receive Date: 20070126
  Receipt Date: 20060914
  Transmission Date: 20070707
  Serious: No
  Sender: FDA-Public Use
  Company Number: 2006CT000813

PATIENT
  Age: 52 Year
  Sex: Female
  Weight: 62.1428 kg

DRUGS (8)
  1. VENTAVIS [Suspect]
     Indication: PULMONARY HYPERTENSION
     Dosage: 5 UG;6XD;INH
     Route: 055
     Dates: start: 20060907, end: 20060911
  2. TRACLEER [Concomitant]
  3. ACTONEL [Concomitant]
  4. WELCHOL [Concomitant]
  5. TESSALON [Concomitant]
  6. PREDNISONE TAB [Concomitant]
  7. ALBUTEROL [Concomitant]
  8. PRILOSEC [Concomitant]

REACTIONS (3)
  - DIARRHOEA [None]
  - OEDEMA MOUTH [None]
  - OEDEMA PERIPHERAL [None]
